FAERS Safety Report 14262057 (Version 3)
Quarter: 2018Q1

REPORT INFORMATION
  Report Type: Report from Study
  Country: None (occurrence: US)
  Receive Date: 20171208
  Receipt Date: 20180117
  Transmission Date: 20180508
  Serious: Yes (Hospitalization, Other)
  Sender: FDA-Public Use
  Company Number: US-ABBVIE-17K-163-2184636-00

PATIENT
  Age: 64 Year
  Sex: Male
  Weight: 66.28 kg

DRUGS (16)
  1. DORZOLAMIDE [Concomitant]
     Active Substance: DORZOLAMIDE
     Indication: PRODUCT USED FOR UNKNOWN INDICATION
  2. ALPHAGAN P [Concomitant]
     Active Substance: BRIMONIDINE TARTRATE
     Indication: PRODUCT USED FOR UNKNOWN INDICATION
  3. VITAMIN C [Concomitant]
     Active Substance: ASCORBIC ACID
     Indication: PRODUCT USED FOR UNKNOWN INDICATION
  4. HUMIRA [Suspect]
     Active Substance: ADALIMUMAB
     Indication: CROHN^S DISEASE
     Route: 058
     Dates: start: 2014
  5. HUMIRA [Suspect]
     Active Substance: ADALIMUMAB
     Route: 058
     Dates: start: 2016, end: 201705
  6. GABAPENTIN. [Concomitant]
     Active Substance: GABAPENTIN
     Indication: PRODUCT USED FOR UNKNOWN INDICATION
  7. TRAMADOL. [Concomitant]
     Active Substance: TRAMADOL
     Indication: PRODUCT USED FOR UNKNOWN INDICATION
  8. FOLIC ACID. [Concomitant]
     Active Substance: FOLIC ACID
     Indication: PRODUCT USED FOR UNKNOWN INDICATION
  9. VITAMIN B12 [Concomitant]
     Active Substance: CYANOCOBALAMIN
     Indication: PRODUCT USED FOR UNKNOWN INDICATION
  10. DOCUSATE SODIUM. [Concomitant]
     Active Substance: DOCUSATE SODIUM
     Indication: PRODUCT USED FOR UNKNOWN INDICATION
  11. VITAMIN D3 [Concomitant]
     Active Substance: CHOLECALCIFEROL
     Indication: PRODUCT USED FOR UNKNOWN INDICATION
  12. HUMIRA [Suspect]
     Active Substance: ADALIMUMAB
     Route: 058
     Dates: start: 201710
  13. TRAVATAN [Concomitant]
     Active Substance: TRAVOPROST
     Indication: PRODUCT USED FOR UNKNOWN INDICATION
  14. HYDROCODONE [Concomitant]
     Active Substance: HYDROCODONE
     Indication: PRODUCT USED FOR UNKNOWN INDICATION
  15. PENTASA [Concomitant]
     Active Substance: MESALAMINE
     Indication: PRODUCT USED FOR UNKNOWN INDICATION
  16. LORATADINE. [Concomitant]
     Active Substance: LORATADINE
     Indication: PRODUCT USED FOR UNKNOWN INDICATION

REACTIONS (31)
  - Small intestinal obstruction [Recovered/Resolved]
  - Small intestinal obstruction [Unknown]
  - Nausea [Recovered/Resolved]
  - Nausea [Unknown]
  - Fistula [Not Recovered/Not Resolved]
  - Crohn^s disease [Recovered/Resolved]
  - Bronchitis [Recovered/Resolved]
  - Open angle glaucoma [Not Recovered/Not Resolved]
  - Crohn^s disease [Not Recovered/Not Resolved]
  - Back pain [Unknown]
  - Leukocytosis [Recovered/Resolved]
  - Hiccups [Recovered/Resolved]
  - Dyschezia [Recovered/Resolved]
  - Crohn^s disease [Recovered/Resolved]
  - Intestinal obstruction [Recovered/Resolved]
  - Nausea [Recovered/Resolved]
  - Abscess [Unknown]
  - Mesenteric vascular occlusion [Unknown]
  - Hyperglycaemia [Recovered/Resolved]
  - Spinal pain [Recovered/Resolved]
  - Nocturia [Recovered/Resolved]
  - Hiccups [Unknown]
  - Uveitis [Recovered/Resolved]
  - Upper respiratory tract infection [Recovered/Resolved]
  - Microcytosis [Unknown]
  - Systemic inflammatory response syndrome [Unknown]
  - Volvulus [Unknown]
  - Gastrointestinal oedema [Unknown]
  - Rhinorrhoea [Not Recovered/Not Resolved]
  - Hypochromic anaemia [Recovering/Resolving]
  - Omphalitis [Not Recovered/Not Resolved]

NARRATIVE: CASE EVENT DATE: 201512
